FAERS Safety Report 10215783 (Version 2)
Quarter: 2014Q2

REPORT INFORMATION
  Report Type: Spontaneous
  Country: JP (occurrence: JP)
  Receive Date: 20140604
  Receipt Date: 20140604
  Transmission Date: 20141212
  Serious: Yes (Other)
  Sender: FDA-Public Use
  Company Number: PHHY2014JP059713

PATIENT
  Age: 5 Year
  Sex: 0

DRUGS (2)
  1. EXJADE [Suspect]
     Indication: BONE MARROW FAILURE
     Dosage: 30 MG/KG, DAILY
     Route: 048
     Dates: start: 201401, end: 201402
  2. DESFERAL [Suspect]
     Dosage: 80 MG/KG, DAILY
     Route: 030
     Dates: start: 201401, end: 201402

REACTIONS (4)
  - Liver injury [Recovered/Resolved]
  - Aspartate aminotransferase increased [Recovered/Resolved]
  - Alanine aminotransferase increased [Recovered/Resolved]
  - Serum ferritin increased [Recovered/Resolved]
